FAERS Safety Report 6734270-1 (Version None)
Quarter: 2010Q2

REPORT INFORMATION
  Report Type: 
  Country: None (occurrence: None)
  Receive Date: 20100518
  Receipt Date: 20100503
  Transmission Date: 20101027
  Serious: Yes (Other)
  Sender: FDA-Public Use
  Company Number: AUR-APL-2010-01235

PATIENT
  Age: 56 Year
  Sex: Female

DRUGS (5)
  1. MINOCYCLINE HCL [Suspect]
     Indication: ACNE
  2. RETINOIDS [Concomitant]
  3. CLINDAMYCIN [Concomitant]
  4. BENZOYL PEROXIDE [Concomitant]
  5. DOXYCYCLINE [Concomitant]

REACTIONS (7)
  - BASAL CELL CARCINOMA [None]
  - BUNION [None]
  - CONTUSION [None]
  - NERVOUSNESS [None]
  - RASH MACULAR [None]
  - SEBORRHOEIC KERATOSIS [None]
  - SKIN HYPERPIGMENTATION [None]
